FAERS Safety Report 5693516-1 (Version None)
Quarter: 2008Q2

REPORT INFORMATION
  Report Type: 
  Country: None (occurrence: None)
  Receive Date: 20080403
  Receipt Date: 20080328
  Transmission Date: 20081010
  Serious: No
  Sender: FDA-Public Use
  Company Number: B0513893A

PATIENT
  Age: 1 Year
  Sex: Female
  Weight: 9 kg

DRUGS (3)
  1. MODACIN [Suspect]
     Dosage: 500MG TWICE PER DAY
     Route: 042
     Dates: start: 20080319, end: 20080320
  2. PENTCILLIN [Concomitant]
     Dosage: 1000MG PER DAY
     Route: 042
     Dates: start: 20080317, end: 20080318
  3. DECADRON [Concomitant]
     Dosage: 3.5MG PER DAY
     Dates: start: 20080319, end: 20080319

REACTIONS (1)
  - RENAL DISORDER [None]
